FAERS Safety Report 25175439 (Version 1)
Quarter: 2025Q2

REPORT INFORMATION
  Report Type: Spontaneous
  Country: US (occurrence: US)
  Receive Date: 20250408
  Receipt Date: 20250408
  Transmission Date: 20250717
  Serious: Yes (Life-Threatening, Hospitalization, Other)
  Sender: AMGEN
  Company Number: US-AMGEN-USASP2025064804

PATIENT
  Age: 50 Year
  Sex: Female

DRUGS (2)
  1. RITUXIMAB [Suspect]
     Active Substance: RITUXIMAB
     Indication: Hypothyroidism
     Route: 065
  2. RITUXIMAB [Suspect]
     Active Substance: RITUXIMAB
     Indication: Immune thrombocytopenia

REACTIONS (13)
  - Septic shock [Recovered/Resolved]
  - Hypogammaglobulinaemia [Recovered/Resolved]
  - Vaginal cuff dehiscence [Recovered/Resolved]
  - Influenza [Recovered/Resolved]
  - Enterococcus test positive [Recovered/Resolved]
  - Omentectomy [Unknown]
  - Mycoplasma infection [Recovered/Resolved]
  - Ureaplasma infection [Recovered/Resolved]
  - Intra-abdominal fluid collection [Recovered/Resolved]
  - Hysterosalpingectomy [Unknown]
  - Genitourinary operation [Unknown]
  - Immunosuppression [Unknown]
  - Off label use [Unknown]
